FAERS Safety Report 14613107 (Version 1)
Quarter: 2018Q1

REPORT INFORMATION
  Report Type: Spontaneous
  Country: US (occurrence: US)
  Receive Date: 20180308
  Receipt Date: 20180308
  Transmission Date: 20180509
  Serious: No
  Sender: FDA-Public Use
  Company Number: None

PATIENT
  Age: 30 Year
  Sex: Female

DRUGS (10)
  1. HUMIRA [Suspect]
     Active Substance: ADALIMUMAB
     Indication: CROHN^S DISEASE
     Route: 058
     Dates: start: 20180130
  2. FERROUS SULF [Concomitant]
     Active Substance: FERROUS SULFATE
  3. METRONIDAZOL [Concomitant]
     Active Substance: METRONIDAZOLE
  4. NAPROXEN. [Concomitant]
     Active Substance: NAPROXEN
  5. ONDANSETRON [Concomitant]
     Active Substance: ONDANSETRON
  6. METHYLPRED [Concomitant]
     Active Substance: METHYLPREDNISOLONE
  7. POT CL MICRO [Concomitant]
  8. HYDROCO/APAP [Concomitant]
     Active Substance: ACETAMINOPHEN\HYDROCODONE
  9. VITAMIN D [Concomitant]
     Active Substance: CHOLECALCIFEROL
  10. CITALOPRAM [Concomitant]
     Active Substance: CITALOPRAM HYDROBROMIDE

REACTIONS (1)
  - Hospitalisation [None]

NARRATIVE: CASE EVENT DATE: 201802
